FAERS Safety Report 7623598-9 (Version None)
Quarter: 2011Q3

REPORT INFORMATION
  Report Type: 
  Country: None (occurrence: None)
  Receive Date: 20110720
  Receipt Date: 20110705
  Transmission Date: 20111222
  Serious: Yes (Other)
  Sender: FDA-Public Use
  Company Number: JP-WATSON-2011-10581

PATIENT

DRUGS (3)
  1. BEVACIZUMAB [Suspect]
     Indication: NON-SMALL CELL LUNG CANCER
     Dosage: 15 MG/KG, UNK
     Route: 065
  2. CARBOPLATIN [Suspect]
     Indication: NON-SMALL CELL LUNG CANCER RECURRENT
     Dosage: 6 MG/MIN/ML
     Route: 065
  3. DOCETAXEL [Suspect]
     Indication: NON-SMALL CELL LUNG CANCER
     Dosage: 60 MG/M2
     Route: 065

REACTIONS (7)
  - LEUKOPENIA [None]
  - EPISTAXIS [None]
  - NEUTROPENIA [None]
  - THROMBOCYTOPENIA [None]
  - HYPERTENSION [None]
  - HYPERSENSITIVITY [None]
  - HAEMOPTYSIS [None]
